FAERS Safety Report 9916501 (Version 1)
Quarter: 2014Q1

REPORT INFORMATION
  Report Type: Spontaneous
  Country: US (occurrence: None)
  Receive Date: 20140219
  Receipt Date: 20140219
  Transmission Date: 20141002
  Serious: Yes (Hospitalization)
  Sender: FDA-Public Use
  Company Number: FK201400517

PATIENT
  Age: 56 Year
  Sex: Female

DRUGS (4)
  1. CISPLATIN (CISPLATIN) [Suspect]
     Indication: OESOPHAGEAL SQUAMOUS CELL CARCINOMA
     Dates: start: 201101
  2. FLUOROURACIL [Suspect]
     Indication: OESOPHAGEAL SQUAMOUS CELL CARCINOMA
  3. DOCETAXEL [Suspect]
     Indication: OESOPHAGEAL SQUAMOUS CELL CARCINOMA
     Dates: start: 201108
  4. NEDAPLATIN [Suspect]
     Indication: OESOPHAGEAL SQUAMOUS CELL CARCINOMA
     Dates: start: 201108

REACTIONS (9)
  - Purulent pericarditis [None]
  - Oesophageal fistula [None]
  - Oesophageal stenosis [None]
  - Abdominal pain upper [None]
  - Pyrexia [None]
  - Tachycardia [None]
  - Hypotension [None]
  - General symptom [None]
  - General physical health deterioration [None]
